FAERS Safety Report 6538599-1 (Version None)
Quarter: 2010Q1

REPORT INFORMATION
  Report Type: 
  Country: None (occurrence: None)
  Receive Date: 20100113
  Receipt Date: 20100113
  Transmission Date: 20100710
  Serious: Yes (Death)
  Sender: FDA-Public Use
  Company Number: None

PATIENT
  Age: 51 Year
  Sex: Male
  Weight: 90.7194 kg

DRUGS (1)
  1. METOPROLOL TARTRATE [Suspect]
     Indication: CHEST PAIN
     Dosage: PRESCRIPTION FILLED 2/05/09
     Dates: start: 20090205

REACTIONS (7)
  - ABNORMAL DREAMS [None]
  - ANXIETY [None]
  - COMPLETED SUICIDE [None]
  - GUN SHOT WOUND [None]
  - INSOMNIA [None]
  - NIGHTMARE [None]
  - THINKING ABNORMAL [None]
